FAERS Safety Report 23285805 (Version 1)
Quarter: 2023Q4

REPORT INFORMATION
  Report Type: Spontaneous
  Country: GB (occurrence: GB)
  Receive Date: 20231212
  Receipt Date: 20231212
  Transmission Date: 20240110
  Serious: Yes (Congenital Anomaly)
  Sender: FDA-Public Use
  Company Number: None

PATIENT
  Age: 93 Year
  Sex: Male

DRUGS (22)
  1. CAPSAICIN [Suspect]
     Active Substance: CAPSAICIN
     Indication: Product used for unknown indication
     Dosage: UNK
     Route: 003
  2. POLYETHYLENE GLYCOL 4000 [Suspect]
     Active Substance: POLYETHYLENE GLYCOL 4000
     Indication: Product used for unknown indication
     Dosage: UNK
     Route: 065
  3. DICLOFENAC [Suspect]
     Active Substance: DICLOFENAC
     Indication: Product used for unknown indication
     Dosage: UNK
     Route: 065
  4. LOSARTAN [Concomitant]
     Active Substance: LOSARTAN
     Dosage: 1 DOSAGE FORM, 1/DAY
     Route: 065
     Dates: start: 20231201
  5. EPHEDRINE [Concomitant]
     Active Substance: EPHEDRINE
     Dosage: UNK
     Route: 065
  6. PARAFFIN [Concomitant]
     Active Substance: PARAFFIN
     Dosage: UNK
     Route: 065
  7. NITROGLYCERIN [Concomitant]
     Active Substance: NITROGLYCERIN
     Dosage: 400 MICROGRAM, AS NEEDED
     Route: 065
  8. CHLORPHENIRAMINE MALEATE [Concomitant]
     Active Substance: CHLORPHENIRAMINE MALEATE
     Dosage: 4 MILLIGRAM, AS NEEDED
     Route: 065
  9. CHLORPHENIRAMINE MALEATE [Concomitant]
     Active Substance: CHLORPHENIRAMINE MALEATE
     Dosage: UNK
     Route: 065
  10. YELLOW SOFT PARAFFIN [Concomitant]
     Dosage: 1 DOSAGE FORM, 2/DAY
     Route: 065
  11. BUMETANIDE [Concomitant]
     Active Substance: BUMETANIDE
     Dosage: 2 MILLIGRAM, 1/DAY
     Route: 065
  12. SENNOSIDES A AND B [Concomitant]
     Active Substance: SENNOSIDES A AND B
     Dosage: 15 MILLIGRAM, 1/DAY
     Route: 065
  13. NICORANDIL [Concomitant]
     Active Substance: NICORANDIL
     Dosage: 20 MILLIGRAM, 2/DAY
     Route: 065
  14. DEXIBUPROFEN [Concomitant]
     Active Substance: DEXIBUPROFEN
     Dosage: 1 DOSAGE FORM, AS NEEDED
     Route: 065
  15. PSEUDOEPHEDRINE [Concomitant]
     Active Substance: PSEUDOEPHEDRINE
     Dosage: UNK
     Route: 065
  16. DOCUSATE [Concomitant]
     Active Substance: DOCUSATE
     Dosage: 200 MILLIGRAM, 2/DAY
     Route: 065
  17. MORPHINE [Concomitant]
     Active Substance: MORPHINE
     Dosage: 2.5 MILLIGRAM, EVERY 4 HRS
     Route: 065
  18. EDOXABAN [Concomitant]
     Active Substance: EDOXABAN
     Dosage: 30 MILLIGRAM
     Route: 065
  19. MINERAL OIL [Concomitant]
     Active Substance: MINERAL OIL
     Dosage: UNK
     Route: 065
  20. COSMETICS [Concomitant]
     Active Substance: COSMETICS
     Dosage: UNK
     Route: 065
  21. BENZYDAMINE [Concomitant]
     Active Substance: BENZYDAMINE
     Dosage: 4 DOSAGE FORM, AS NEEDED
     Route: 065
  22. PARAFFIN\WAX, EMULSIFYING [Concomitant]
     Active Substance: PARAFFIN\WAX, EMULSIFYING
     Dosage: UNK
     Route: 065

REACTIONS (2)
  - Swelling face [Unknown]
  - Pruritus [Unknown]
